FAERS Safety Report 13210481 (Version 1)
Quarter: 2017Q1

REPORT INFORMATION
  Report Type: Spontaneous
  Country: NO (occurrence: NO)
  Receive Date: 20170210
  Receipt Date: 20170210
  Transmission Date: 20170428
  Serious: Yes (Hospitalization, Other)
  Sender: FDA-Public Use
  Company Number: NO-APOPHARMA USA, INC.-2017AP006299

PATIENT
  Age: 42 Year
  Sex: Male

DRUGS (5)
  1. ALKERAN [Suspect]
     Active Substance: MELPHALAN
     Indication: STEM CELL TRANSPLANT
     Dosage: UNK
     Route: 065
     Dates: start: 201212
  2. CARMUSTINE [Concomitant]
     Active Substance: CARMUSTINE
     Indication: STEM CELL TRANSPLANT
     Dosage: UNK
     Route: 065
     Dates: start: 201212
  3. ETOPOSIDE. [Concomitant]
     Active Substance: ETOPOSIDE
     Indication: STEM CELL TRANSPLANT
     Dosage: UNK
     Route: 065
     Dates: start: 201212
  4. CYTARABINE. [Concomitant]
     Active Substance: CYTARABINE
     Indication: STEM CELL TRANSPLANT
     Dosage: UNK
     Route: 065
     Dates: start: 201212
  5. ANTITHYMOCYTE IMMUNOGLOBULIN [Concomitant]
     Active Substance: THYMOCYTE IMMUNE GLOBULIN NOS
     Indication: PRODUCT USED FOR UNKNOWN INDICATION
     Dosage: UNK
     Route: 065

REACTIONS (15)
  - Abasia [Unknown]
  - Fatigue [Unknown]
  - Paraparesis [Unknown]
  - Disability assessment scale score increased [Unknown]
  - Sepsis [Unknown]
  - Neutropenic sepsis [Unknown]
  - Infection [Unknown]
  - Engraftment syndrome [Unknown]
  - Agranulocytosis [Unknown]
  - Diarrhoea [Unknown]
  - Chronic inflammatory demyelinating polyradiculoneuropathy [Unknown]
  - Neutropenia [Unknown]
  - Pulmonary sepsis [Unknown]
  - Dermatitis allergic [Unknown]
  - Gait disturbance [Unknown]

NARRATIVE: CASE EVENT DATE: 201212
